FAERS Safety Report 11108002 (Version 8)
Quarter: 2020Q2

REPORT INFORMATION
  Report Type: Report from Study
  Country: US (occurrence: US)
  Receive Date: 20150512
  Receipt Date: 20200617
  Transmission Date: 20200713
  Serious: Yes (Hospitalization, Other)
  Sender: FDA-Public Use
  Company Number: US-ACTELION-A-US2015-117576

PATIENT
  Age: 65 Year
  Sex: Female

DRUGS (1)
  1. TRACLEER [Suspect]
     Active Substance: BOSENTAN
     Indication: PULMONARY ARTERIAL HYPERTENSION
     Dosage: 125 MG, BID
     Route: 048
     Dates: start: 201005

REACTIONS (17)
  - Coronary artery occlusion [Unknown]
  - Weight decreased [Unknown]
  - Pulmonary arterial hypertension [Unknown]
  - Right ventricular hypertrophy [Unknown]
  - Cardiac operation [Unknown]
  - Anxiety [Unknown]
  - Stress [Unknown]
  - Upper respiratory tract infection [Unknown]
  - Visual impairment [Unknown]
  - Coronary artery bypass [Unknown]
  - Infective aortitis [Unknown]
  - Generalised tonic-clonic seizure [Unknown]
  - Catheterisation cardiac [Unknown]
  - Pyrexia [Unknown]
  - Autoimmune disorder [Unknown]
  - Cellulitis [Unknown]
  - Myocardial infarction [Unknown]

NARRATIVE: CASE EVENT DATE: 2014
